FAERS Safety Report 24283315 (Version 1)
Quarter: 2024Q3

REPORT INFORMATION
  Report Type: Spontaneous
  Country: PL (occurrence: PL)
  Receive Date: 20240904
  Receipt Date: 20240904
  Transmission Date: 20241016
  Serious: Yes (Hospitalization, Other)
  Sender: PFIZER
  Company Number: PL-PFIZER INC-PV202400115311

PATIENT
  Age: 73 Year
  Sex: Male

DRUGS (3)
  1. CARBOPLATIN [Suspect]
     Active Substance: CARBOPLATIN
     Indication: Lung squamous cell carcinoma stage IV
     Dosage: 5 MG/ML/MIN, 4 CYCLES
     Dates: start: 20210906
  2. PEMBROLIZUMAB [Suspect]
     Active Substance: PEMBROLIZUMAB
     Indication: Lung squamous cell carcinoma stage IV
     Dosage: 200 MG - 42 CYCLES
     Route: 042
     Dates: start: 20210906, end: 20240329
  3. PACLITAXEL [Suspect]
     Active Substance: PACLITAXEL
     Indication: Lung squamous cell carcinoma stage IV
     Dosage: 200 MG/M2; 4 CYCLES
     Route: 042
     Dates: start: 20210906

REACTIONS (6)
  - Neutropenia [Unknown]
  - Leukopenia [Unknown]
  - Cholelithiasis [Unknown]
  - Biliary obstruction [Unknown]
  - Blood pressure increased [Unknown]
  - Therapy partial responder [Unknown]
